FAERS Safety Report 21503122 (Version 1)
Quarter: 2022Q4

REPORT INFORMATION
  Report Type: Report from Study
  Country: US (occurrence: US)
  Receive Date: 20221025
  Receipt Date: 20221025
  Transmission Date: 20230113
  Serious: Yes (Other)
  Sender: FDA-Public Use
  Company Number: US-ABBVIE-22K-163-4324509-00

PATIENT
  Age: 76 Year
  Sex: Female
  Weight: 70.306 kg

DRUGS (7)
  1. IMBRUVICA [Suspect]
     Active Substance: IBRUTINIB
     Indication: Chronic lymphocytic leukaemia
     Dosage: DOSE DECREASE
     Route: 048
     Dates: start: 202102, end: 202203
  2. IMBRUVICA [Suspect]
     Active Substance: IBRUTINIB
     Indication: Chronic lymphocytic leukaemia
     Route: 048
     Dates: start: 202204, end: 20220704
  3. IMBRUVICA [Suspect]
     Active Substance: IBRUTINIB
     Indication: Chronic lymphocytic leukaemia
     Route: 048
  4. ATORVASTATIN [Concomitant]
     Active Substance: ATORVASTATIN
     Indication: Product used for unknown indication
  5. AMLODIPINE [Suspect]
     Active Substance: AMLODIPINE BESYLATE
     Indication: Hypertension
  6. DULOXETINE [Concomitant]
     Active Substance: DULOXETINE
     Indication: Product used for unknown indication
  7. DIOVAN [Concomitant]
     Active Substance: VALSARTAN
     Indication: Product used for unknown indication

REACTIONS (13)
  - Hypertension [Recovering/Resolving]
  - Glomerular filtration rate decreased [Unknown]
  - Investigation abnormal [Unknown]
  - Depression [Unknown]
  - Full blood count abnormal [Unknown]
  - Blood creatinine increased [Unknown]
  - Haematuria [Unknown]
  - Fatigue [Unknown]
  - Renal impairment [Unknown]
  - Adverse drug reaction [Unknown]
  - Neutrophil count decreased [Unknown]
  - Anaemia [Unknown]
  - Renal impairment [Recovering/Resolving]

NARRATIVE: CASE EVENT DATE: 20210712
